FAERS Safety Report 6109539-4 (Version None)
Quarter: 2009Q1

REPORT INFORMATION
  Report Type: 
  Country: None (occurrence: None)
  Receive Date: 20090310
  Receipt Date: 20090227
  Transmission Date: 20090719
  Serious: Yes (Other)
  Sender: FDA-Public Use
  Company Number: GB-TEVA-186974ISR

PATIENT
  Sex: Female

DRUGS (2)
  1. SERTRALINE [Suspect]
  2. REBOXETINE [Suspect]

REACTIONS (1)
  - NEUROPATHY PERIPHERAL [None]
